FAERS Safety Report 20066875 (Version 1)
Quarter: 2021Q4

REPORT INFORMATION
  Report Type: Spontaneous
  Country: US (occurrence: US)
  Receive Date: 20211115
  Receipt Date: 20211115
  Transmission Date: 20220303
  Serious: No
  Sender: FDA-Public Use
  Company Number: US-AMGEN-USASP2021172507

PATIENT
  Sex: Female

DRUGS (3)
  1. REPATHA [Suspect]
     Active Substance: EVOLOCUMAB
     Indication: Blood cholesterol increased
     Dosage: 140 MILLIGRAM, Q2WK
     Route: 065
     Dates: start: 2020
  2. METOPROLOL [Concomitant]
     Active Substance: METOPROLOL
  3. CARVEDILOL [Concomitant]
     Active Substance: CARVEDILOL

REACTIONS (3)
  - Oral candidiasis [Not Recovered/Not Resolved]
  - Sleep disorder due to a general medical condition [Unknown]
  - Bronchitis [Unknown]

NARRATIVE: CASE EVENT DATE: 20200101
